FAERS Safety Report 6897466-4 (Version None)
Quarter: 2010Q3

REPORT INFORMATION
  Report Type: 
  Country: None (occurrence: None)
  Receive Date: 20100802
  Receipt Date: 20070614
  Transmission Date: 20110219
  Serious: No
  Sender: FDA-Public Use
  Company Number: US-PFIZER INC-2007049471

PATIENT
  Sex: Male
  Weight: 97.7 kg

DRUGS (7)
  1. LYRICA [Suspect]
     Indication: DIABETIC NEUROPATHY
     Dates: start: 20070401
  2. LISINOPRIL [Concomitant]
  3. VYTORIN [Concomitant]
  4. ACIPHEX [Concomitant]
  5. HUMALOG [Concomitant]
  6. LANTUS [Concomitant]
  7. ULTRAVATE [Concomitant]

REACTIONS (2)
  - SOMNOLENCE [None]
  - WEIGHT INCREASED [None]
